FAERS Safety Report 8169293-1 (Version None)
Quarter: 2012Q1

REPORT INFORMATION
  Report Type: 
  Country: None (occurrence: None)
  Receive Date: 20120228
  Receipt Date: 20120215
  Transmission Date: 20120608
  Serious: Yes (Other)
  Sender: FDA-Public Use
  Company Number: US-BIOGENIDEC-2012BI002914

PATIENT
  Sex: Male
  Weight: 90 kg

DRUGS (10)
  1. DETROL [Concomitant]
  2. MARINOL [Concomitant]
  3. CLONAZEPAM [Concomitant]
  4. AMANTADINE HCL [Concomitant]
  5. NASONEX [Concomitant]
     Route: 045
  6. PRILOSEC [Concomitant]
  7. TYSABRI [Suspect]
     Indication: MULTIPLE SCLEROSIS
     Route: 042
     Dates: start: 20100823, end: 20111107
  8. LORTAB [Concomitant]
  9. LYRICA [Concomitant]
  10. CYMBALTA [Concomitant]
     Indication: DEPRESSION

REACTIONS (4)
  - HEADACHE [None]
  - MULTIPLE SCLEROSIS [None]
  - UPPER RESPIRATORY TRACT INFECTION [None]
  - PROGRESSIVE MULTIFOCAL LEUKOENCEPHALOPATHY [None]
